FAERS Safety Report 10408682 (Version 1)
Quarter: 2014Q1

REPORT INFORMATION
  Report Type: Spontaneous
  Country: US (occurrence: None)
  Receive Date: 20130225
  Receipt Date: 20130225
  Transmission Date: 20141002
  Serious: Yes (Other)
  Sender: FDA-Public Use
  Company Number: 2012000163S

PATIENT
  Age: 34 Year
  Sex: Female
  Weight: 56.7 kg

DRUGS (2)
  1. KEFLEX [Suspect]
     Indication: ANTIBIOTIC PROPHYLAXIS
     Route: 048
     Dates: start: 20120224, end: 20120229
  2. CELEBREX [Suspect]
     Route: 048
     Dates: start: 20120224, end: 20120229

REACTIONS (1)
  - Stevens-Johnson syndrome [None]
